FAERS Safety Report 23981904 (Version 1)
Quarter: 2024Q2

REPORT INFORMATION
  Report Type: Spontaneous
  Country: US (occurrence: US)
  Receive Date: 20240617
  Receipt Date: 20240617
  Transmission Date: 20240716
  Serious: No
  Sender: FDA-Public Use
  Company Number: US-009507513-2406USA000569

PATIENT
  Age: 61 Year
  Sex: Male

DRUGS (5)
  1. INTEGRILIN [Suspect]
     Active Substance: EPTIFIBATIDE
     Dosage: UNK, INFUSION FOR 18 HOURS
  2. ASPIRIN [Concomitant]
     Active Substance: ASPIRIN
     Dosage: 325 MILLIGRAM, ONCE
  3. NITROGLYCERIN [Concomitant]
     Active Substance: NITROGLYCERIN
     Dosage: UNK
     Route: 060
  4. HEPARIN [Concomitant]
     Active Substance: HEPARIN SODIUM
     Dosage: UNK
     Route: 042
  5. TICAGRELOR [Concomitant]
     Active Substance: TICAGRELOR
     Dosage: LOADING DOSE OF 180 MILLIGRAM

REACTIONS (1)
  - Inappropriate schedule of product administration [Unknown]
